FAERS Safety Report 7371450-9 (Version None)
Quarter: 2011Q1

REPORT INFORMATION
  Report Type: 
  Country: None (occurrence: None)
  Receive Date: 20110324
  Receipt Date: 20110317
  Transmission Date: 20110831
  Serious: Yes (Hospitalization)
  Sender: FDA-Public Use
  Company Number: US-BRISTOL-MYERS SQUIBB COMPANY-15605264

PATIENT
  Age: 30 Year
  Sex: Male

DRUGS (2)
  1. UNFRACTIONATED HEPARIN [Suspect]
  2. WARFARIN SODIUM [Suspect]

REACTIONS (2)
  - SKIN NECROSIS [None]
  - HEPARIN-INDUCED THROMBOCYTOPENIA [None]
